FAERS Safety Report 14013341 (Version 4)
Quarter: 2017Q4

REPORT INFORMATION
  Report Type: Report from Study
  Country: US (occurrence: US)
  Receive Date: 20170926
  Receipt Date: 20171206
  Transmission Date: 20180321
  Serious: Yes (Hospitalization)
  Sender: FDA-Public Use
  Company Number: US-PFIZER INC-2017407622

PATIENT
  Age: 14 Year
  Sex: Female
  Weight: 47.1 kg

DRUGS (2)
  1. MELOXICAM. [Concomitant]
     Active Substance: MELOXICAM
     Indication: JUVENILE IDIOPATHIC ARTHRITIS
     Dosage: 7.5 MG, DAILY
     Route: 048
     Dates: start: 20161123
  2. TOFACITINIB CITRATE [Suspect]
     Active Substance: TOFACITINIB CITRATE
     Indication: JUVENILE IDIOPATHIC ARTHRITIS
     Dosage: TWICE DAILY (BID)
     Route: 048
     Dates: start: 20170509, end: 20170913

REACTIONS (3)
  - Epidural empyema [Recovered/Resolved]
  - Sinusitis [Recovered/Resolved]
  - Subperiosteal abscess [Recovered/Resolved]

NARRATIVE: CASE EVENT DATE: 20170911
